FAERS Safety Report 25763320 (Version 1)
Quarter: 2025Q3

REPORT INFORMATION
  Report Type: Spontaneous
  Country: US (occurrence: US)
  Receive Date: 20250905
  Receipt Date: 20250905
  Transmission Date: 20251020
  Serious: No
  Sender: PADAGIS
  Company Number: US-PADAGIS-2025PAD01029

PATIENT

DRUGS (4)
  1. ESTRADIOL VAGINAL [Suspect]
     Active Substance: ESTRADIOL
     Indication: Blood oestrogen decreased
     Route: 065
     Dates: start: 20240801
  2. ESTRADIOL VAGINAL [Suspect]
     Active Substance: ESTRADIOL
     Indication: Urinary tract infection
     Route: 065
  3. ESTRADIOL VAGINAL [Suspect]
     Active Substance: ESTRADIOL
     Route: 065
     Dates: end: 20250702
  4. ESTRADIOL VAGINAL [Suspect]
     Active Substance: ESTRADIOL
     Route: 065
     Dates: start: 20250727

REACTIONS (2)
  - Blood glucose increased [Recovered/Resolved]
  - Product use in unapproved indication [Unknown]

NARRATIVE: CASE EVENT DATE: 20250727
